FAERS Safety Report 23093909 (Version 7)
Quarter: 2024Q1

REPORT INFORMATION
  Report Type: Report from Study
  Country: CA (occurrence: CA)
  Receive Date: 20231023
  Receipt Date: 20240314
  Transmission Date: 20240409
  Serious: Yes (Other)
  Sender: FDA-Public Use
  Company Number: CA-AMGEN-CANSL2022181620

PATIENT
  Age: 42 Year
  Sex: Female

DRUGS (5)
  1. AVSOLA [Suspect]
     Active Substance: INFLIXIMAB-AXXQ
     Indication: Crohn^s disease
     Dosage: 900 MILLIGRAM, Q4WK
     Route: 065
     Dates: start: 20220207
  2. AVSOLA [Suspect]
     Active Substance: INFLIXIMAB-AXXQ
     Dosage: 900 MILLIGRAM, Q4WK
     Route: 065
  3. AVSOLA [Suspect]
     Active Substance: INFLIXIMAB-AXXQ
     Dosage: 900 MILLIGRAM, Q4WK
     Route: 065
  4. AVSOLA [Suspect]
     Active Substance: INFLIXIMAB-AXXQ
     Dosage: 900 MILLIGRAM, Q4WK
     Route: 065
  5. AVSOLA [Suspect]
     Active Substance: INFLIXIMAB-AXXQ
     Dosage: UNK UNK, Q4WK
     Route: 065

REACTIONS (9)
  - Omphalitis [Recovered/Resolved]
  - Bacterial infection [Unknown]
  - Oral herpes [Recovering/Resolving]
  - Ear pain [Unknown]
  - Nasal congestion [Unknown]
  - Peripheral swelling [Unknown]
  - Off label use [Unknown]
  - Raynaud^s phenomenon [Unknown]
  - COVID-19 [Recovered/Resolved]

NARRATIVE: CASE EVENT DATE: 20220101
